FAERS Safety Report 21748315 (Version 1)
Quarter: 2022Q4

REPORT INFORMATION
  Report Type: Spontaneous
  Country: US (occurrence: None)
  Receive Date: 20221216
  Receipt Date: 20221216
  Transmission Date: 20230113
  Serious: No
  Sender: FDA-Public Use
  Company Number: None

PATIENT
  Age: 71 Year
  Sex: Female

DRUGS (2)
  1. TACROLIMUS [Suspect]
     Active Substance: TACROLIMUS
     Indication: Renal transplant
     Dosage: 2MG QAM, 1.5MG QPM BID ORAL?
     Route: 048
     Dates: start: 202203
  2. MYCOPHENOLIC ACID [Suspect]
     Active Substance: MYCOPHENOLIC ACID
     Dosage: 500MG QAM 1000 QPM BID ORAL?
     Route: 048
     Dates: start: 202203

REACTIONS (1)
  - Alopecia [None]

NARRATIVE: CASE EVENT DATE: 20221001
